FAERS Safety Report 14264400 (Version 1)
Quarter: 2017Q4

REPORT INFORMATION
  Report Type: Spontaneous
  Country: US (occurrence: US)
  Receive Date: 20171208
  Receipt Date: 20171208
  Transmission Date: 20180321
  Serious: No
  Sender: FDA-Public Use
  Company Number: US-JAZZ-2017-US-011838

PATIENT
  Sex: Female

DRUGS (23)
  1. VALACYCLOVIR HCL [Concomitant]
     Active Substance: VALACYCLOVIR HYDROCHLORIDE
  2. SYNTHROID [Concomitant]
     Active Substance: LEVOTHYROXINE SODIUM
  3. XYREM [Suspect]
     Active Substance: SODIUM OXYBATE
     Indication: NARCOLEPSY
     Dosage: 2.25G, BID
     Route: 048
     Dates: start: 201406, end: 201406
  4. XIGDUO XR [Suspect]
     Active Substance: DAPAGLIFLOZIN PROPANEDIOL\METFORMIN HYDROCHLORIDE
     Indication: PRODUCT USED FOR UNKNOWN INDICATION
  5. ADDERALL [Concomitant]
     Active Substance: AMPHETAMINE ASPARTATE\AMPHETAMINE SULFATE\DEXTROAMPHETAMINE SACCHARATE\DEXTROAMPHETAMINE SULFATE
  6. GLUMETZA [Concomitant]
     Active Substance: METFORMIN HYDROCHLORIDE
  7. XYREM [Suspect]
     Active Substance: SODIUM OXYBATE
     Dosage: 3G, BID
     Route: 048
     Dates: start: 201608
  8. GABAPENTIN. [Concomitant]
     Active Substance: GABAPENTIN
  9. KEPPRA [Concomitant]
     Active Substance: LEVETIRACETAM
  10. ABILIFY [Concomitant]
     Active Substance: ARIPIPRAZOLE
  11. BUPROPION HCL [Concomitant]
     Active Substance: BUPROPION HYDROCHLORIDE
  12. VICTOZA [Concomitant]
     Active Substance: LIRAGLUTIDE
  13. VYVANSE [Concomitant]
     Active Substance: LISDEXAMFETAMINE DIMESYLATE
  14. JOLIVETTE [Concomitant]
     Active Substance: NORETHINDRONE
  15. LEVEMIR [Concomitant]
     Active Substance: INSULIN DETEMIR
  16. NOVOLOG [Concomitant]
     Active Substance: INSULIN ASPART
  17. METFORMIN HCL [Concomitant]
     Active Substance: METFORMIN HYDROCHLORIDE
  18. LEVEMIR [Concomitant]
     Active Substance: INSULIN DETEMIR
  19. XYREM [Suspect]
     Active Substance: SODIUM OXYBATE
     Dosage: DOSE ADJUSTMENTS
     Route: 048
     Dates: start: 201406, end: 201608
  20. DEPAKOTE [Concomitant]
     Active Substance: DIVALPROEX SODIUM
  21. VIMPAT [Concomitant]
     Active Substance: LACOSAMIDE
  22. VITAMIN D                          /00107901/ [Concomitant]
     Active Substance: ERGOCALCIFEROL
  23. INVOKANA [Concomitant]
     Active Substance: CANAGLIFLOZIN

REACTIONS (1)
  - Fungal infection [Unknown]
